FAERS Safety Report 8425043 (Version 2)
Quarter: 2013Q2

REPORT INFORMATION
  Report Type: Spontaneous
  Country: US (occurrence: US)
  Receive Date: 20120224
  Receipt Date: 20130404
  Transmission Date: 20140414
  Serious: Yes (Hospitalization)
  Sender: FDA-Public Use
  Company Number: US-GLAXOSMITHKLINE-A0833486A

PATIENT
  Age: 71 Year
  Sex: Male
  Weight: 117.7 kg

DRUGS (2)
  1. AVANDIA [Suspect]
     Indication: DIABETES MELLITUS
     Dosage: 8MG PER DAY
     Route: 048
  2. AVANDAMET [Suspect]
     Indication: DIABETES MELLITUS
     Route: 048
     Dates: end: 20070521

REACTIONS (8)
  - Myocardial infarction [Not Recovered/Not Resolved]
  - Cerebrovascular accident [Unknown]
  - Blindness [Unknown]
  - Condition aggravated [Unknown]
  - Coronary artery disease [Unknown]
  - Transient ischaemic attack [Unknown]
  - Cardiac failure congestive [Unknown]
  - Atrial fibrillation [Unknown]
